FAERS Safety Report 21895326 (Version 2)
Quarter: 2023Q1

REPORT INFORMATION
  Report Type: Spontaneous
  Country: JP (occurrence: JP)
  Receive Date: 20230123
  Receipt Date: 20230207
  Transmission Date: 20230418
  Serious: Yes (Other)
  Sender: FDA-Public Use
  Company Number: JP-MTPC-MTPC2023-0001162

PATIENT
  Age: 43 Year
  Sex: Male

DRUGS (4)
  1. REMICADE [Suspect]
     Active Substance: INFLIXIMAB
     Indication: Product used for unknown indication
     Dosage: UNK
     Route: 041
     Dates: start: 2011
  2. STELARA [Suspect]
     Active Substance: USTEKINUMAB
     Indication: Product used for unknown indication
     Route: 058
  3. BUDESONIDE [Concomitant]
     Active Substance: BUDESONIDE
     Route: 048
  4. ADALIMUMAB [Concomitant]
     Active Substance: ADALIMUMAB
     Route: 065

REACTIONS (2)
  - Stoma closure [Unknown]
  - Infusion related reaction [Unknown]
